FAERS Safety Report 13301758 (Version 2)
Quarter: 2017Q1

REPORT INFORMATION
  Report Type: Report from Study
  Country: CO (occurrence: CO)
  Receive Date: 20170307
  Receipt Date: 20170324
  Transmission Date: 20170428
  Serious: Yes (Hospitalization)
  Sender: FDA-Public Use
  Company Number: PHHY2017CO034549

PATIENT
  Sex: Male
  Weight: 58 kg

DRUGS (2)
  1. TASIGNA [Suspect]
     Active Substance: NILOTINIB
     Indication: CHRONIC MYELOID LEUKAEMIA
     Dosage: 200 MG, (2 CAPSULES OF 20MG EVERY 12 HOURS)
     Route: 048
     Dates: start: 20130717
  2. TASIGNA [Suspect]
     Active Substance: NILOTINIB
     Dosage: UNK
     Route: 048
     Dates: end: 201612

REACTIONS (6)
  - Chronic myeloid leukaemia recurrent [Unknown]
  - Weight decreased [Unknown]
  - Yellow skin [Unknown]
  - Splenomegaly [Unknown]
  - Abdominal distension [Unknown]
  - Malaise [Unknown]
